FAERS Safety Report 8531903-4 (Version None)
Quarter: 2012Q3

REPORT INFORMATION
  Report Type: 
  Country: None (occurrence: None)
  Receive Date: 20120703
  Receipt Date: 20120626
  Transmission Date: 20120928
  Serious: Yes (Hospitalization, Other)
  Sender: FDA-Public Use
  Company Number: PHHY2012BR007516

PATIENT
  Sex: Male
  Weight: 73 kg

DRUGS (7)
  1. ENALAPRIL MALEATE [Concomitant]
     Indication: BLOOD CHOLESTEROL
     Dosage: 5 MG, QD (AFTER DINNER)
     Dates: start: 20110904
  2. ATENOLOL [Concomitant]
     Indication: BLOOD PRESSURE
     Dosage: 25 MG, QD (AT NIGHT)
     Dates: start: 20110904
  3. ASPIRIN [Concomitant]
     Indication: PERIPHERAL VASCULAR DISORDER
  4. ASPIRIN [Concomitant]
     Indication: CARDIAC REHABILITATION THERAPY
     Dosage: 1 DF, QD, 100 MG, AT LUNCH INITIATED AFTER HEART SURGERY
     Dates: start: 20110904
  5. DIOVAN HCT [Suspect]
     Indication: HYPERTENSION
     Dosage: 1 DF (320MG VAL/12.5MG HCTZ), QD
     Dates: start: 20110812, end: 20110826
  6. CRESTOR [Concomitant]
     Indication: BLOOD CHOLESTEROL
     Dosage: 1 DF,5 MG, (1 TABLET AFTER DINNER, INITIATED AFTER HEART SURGERY)
  7. AMLODIPINE [Concomitant]
     Indication: BLOOD PRESSURE
     Dosage: UNK UKN, QD (IN THE MORNING)
     Dates: start: 20110904

REACTIONS (4)
  - BLOOD PRESSURE INADEQUATELY CONTROLLED [None]
  - VENOUS OCCLUSION [None]
  - INFARCTION [None]
  - MYOCARDIAL INFARCTION [None]
